FAERS Safety Report 24585649 (Version 1)
Quarter: 2024Q4

REPORT INFORMATION
  Report Type: Spontaneous
  Country: US (occurrence: US)
  Receive Date: 20241106
  Receipt Date: 20241106
  Transmission Date: 20250115
  Serious: Yes (Other)
  Sender: ROCHE
  Company Number: US-ROCHE-10000121918

PATIENT
  Age: 73 Year
  Sex: Female

DRUGS (6)
  1. MYCOPHENOLATE MOFETIL [Suspect]
     Active Substance: MYCOPHENOLATE MOFETIL
     Indication: Pemphigoid
     Route: 065
  2. DAPSONE [Concomitant]
     Active Substance: DAPSONE
  3. DOXYCYCLINE [Concomitant]
     Active Substance: DOXYCYCLINE
  4. NIACINAMIDE [Concomitant]
     Active Substance: NIACINAMIDE
  5. PREDNISONE [Concomitant]
     Active Substance: PREDNISONE
  6. DUPILUMAB [Concomitant]
     Active Substance: DUPILUMAB

REACTIONS (1)
  - Pancreatic neoplasm [Unknown]
